FAERS Safety Report 19929168 (Version 1)
Quarter: 2021Q4

REPORT INFORMATION
  Report Type: Spontaneous
  Country: US (occurrence: US)
  Receive Date: 20211007
  Receipt Date: 20211007
  Transmission Date: 20220303
  Serious: Yes (Hospitalization)
  Sender: FDA-Public Use
  Company Number: ENDG21-06194

PATIENT
  Age: 10 Month
  Sex: Male

DRUGS (2)
  1. VIGABATRIN [Suspect]
     Active Substance: VIGABATRIN
     Indication: Infantile spasms
     Dosage: 1000 MG, DAILY
     Route: 048
  2. VIGABATRIN [Suspect]
     Active Substance: VIGABATRIN
     Indication: Infantile spasms
     Dosage: 1000 MG, DAILY
     Route: 048

REACTIONS (2)
  - Toxicity to various agents [Unknown]
  - Leukodystrophy [Unknown]

NARRATIVE: CASE EVENT DATE: 20210907
